FAERS Safety Report 11468607 (Version 1)
Quarter: 2015Q3

REPORT INFORMATION
  Report Type: Spontaneous
  Country: US (occurrence: None)
  Receive Date: 20150904
  Receipt Date: 20150904
  Transmission Date: 20151125
  Serious: Yes (Other)
  Sender: FDA-Public Use
  Company Number: None

PATIENT
  Age: 51 Year
  Sex: Female
  Weight: 63.5 kg

DRUGS (1)
  1. ARMOUR THYROID [Suspect]
     Active Substance: THYROID, PORCINE\THYROID, UNSPECIFIED
     Indication: HYPOTHYROIDISM
     Dosage: TAKEN UNDER THE TONGUE
     Dates: start: 20150201, end: 20150903

REACTIONS (6)
  - Disease recurrence [None]
  - Product quality issue [None]
  - Impaired work ability [None]
  - Hypothyroidism [None]
  - Product substitution issue [None]
  - General physical health deterioration [None]

NARRATIVE: CASE EVENT DATE: 20150701
